FAERS Safety Report 11129995 (Version 1)
Quarter: 2015Q2

REPORT INFORMATION
  Report Type: Report from Study
  Country: US (occurrence: US)
  Receive Date: 20150521
  Receipt Date: 20150521
  Transmission Date: 20150821
  Serious: Yes (Other)
  Sender: FDA-Public Use
  Company Number: PHEH2015US009149

PATIENT

DRUGS (1)
  1. MYFORTIC [Suspect]
     Active Substance: MYCOPHENOLATE SODIUM
     Indication: PRODUCT USED FOR UNKNOWN INDICATION
     Dosage: UNK
     Route: 065

REACTIONS (11)
  - Cytomegalovirus infection [Unknown]
  - Musculoskeletal discomfort [Unknown]
  - Ureteric stenosis [Unknown]
  - Spinal column stenosis [Unknown]
  - Lymphocele [Unknown]
  - Obstructive uropathy [Unknown]
  - Coronary artery disease [Unknown]
  - Thrombocytopenia [Unknown]
  - Urosepsis [Unknown]
  - Lung disorder [Unknown]
  - Leukopenia [Unknown]
